FAERS Safety Report 5901812-5 (Version None)
Quarter: 2008Q3

REPORT INFORMATION
  Report Type: 
  Country: None (occurrence: None)
  Receive Date: 20080929
  Receipt Date: 20080922
  Transmission Date: 20090109
  Serious: Yes (Congenital Anomaly)
  Sender: FDA-Public Use
  Company Number: US-TEVA-157410USA

PATIENT

DRUGS (2)
  1. TAMOXIFEN CITRATE 10MG TABLETS [Suspect]
     Indication: BREAST CANCER
     Route: 064
  2. NORETHINDRONE ACETATE [Concomitant]

REACTIONS (4)
  - DRUG EXPOSURE DURING PREGNANCY [None]
  - OBSTRUCTIVE AIRWAYS DISORDER [None]
  - PIERRE ROBIN SYNDROME [None]
  - TALIPES [None]
